FAERS Safety Report 21194284 (Version 4)
Quarter: 2022Q4

REPORT INFORMATION
  Report Type: Report from Study
  Country: CA (occurrence: CA)
  Receive Date: 20220810
  Receipt Date: 20221116
  Transmission Date: 20230112
  Serious: Yes (Other)
  Sender: FDA-Public Use
  Company Number: CA-JNJFOC-20220819781

PATIENT
  Age: 58 Year
  Sex: Female

DRUGS (2)
  1. REMICADE [Suspect]
     Active Substance: INFLIXIMAB
     Indication: Crohn^s disease
     Route: 042
     Dates: start: 20210826
  2. REMICADE [Suspect]
     Active Substance: INFLIXIMAB
     Dosage: ON 12-SEP-2022, THE PATIENT RECEIVED 15TH INFUSION OF 900 MG. AND PARTIAL HARVEY-BRADSHAW COMPLETED.
     Route: 042

REACTIONS (3)
  - Pyoderma gangrenosum [Unknown]
  - Granuloma annulare [Unknown]
  - Abdominal pain [Unknown]

NARRATIVE: CASE EVENT DATE: 20220911
